FAERS Safety Report 14108251 (Version 1)
Quarter: 2017Q4

REPORT INFORMATION
  Report Type: Spontaneous
  Country: US (occurrence: US)
  Receive Date: 20171019
  Receipt Date: 20171019
  Transmission Date: 20180321
  Serious: Yes (Life-Threatening)
  Sender: FDA-Public Use
  Company Number: US-LANNETT COMPANY, INC.-US-2017LAN001117

PATIENT
  Age: 54 Year
  Sex: Female

DRUGS (4)
  1. DOXEPIN HYDROCHLORIDE. [Suspect]
     Active Substance: DOXEPIN HYDROCHLORIDE
     Indication: PRODUCT USED FOR UNKNOWN INDICATION
     Dosage: UNK
     Route: 048
  2. HYDROXYZINE HYDROCHLORIDE. [Suspect]
     Active Substance: HYDROXYZINE HYDROCHLORIDE
     Indication: PRODUCT USED FOR UNKNOWN INDICATION
     Dosage: UNK
     Route: 048
  3. LOPERAMIDE [Suspect]
     Active Substance: LOPERAMIDE
     Indication: DIARRHOEA
     Dosage: UNK
     Route: 048
  4. CARISOPRODOL. [Suspect]
     Active Substance: CARISOPRODOL
     Route: 048

REACTIONS (6)
  - Coma [Unknown]
  - Suicide attempt [Unknown]
  - Lethargy [Unknown]
  - Somnolence [Unknown]
  - Tachycardia [Unknown]
  - Intentional product misuse [Unknown]
